FAERS Safety Report 21615103 (Version 2)
Quarter: 2023Q1

REPORT INFORMATION
  Report Type: Spontaneous
  Country: CA (occurrence: CA)
  Receive Date: 20221118
  Receipt Date: 20230118
  Transmission Date: 20230418
  Serious: Yes (Death, Hospitalization, Other)
  Sender: FDA-Public Use
  Company Number: CA-PFIZER INC-202201292572

PATIENT
  Age: 51 Year
  Sex: Male

DRUGS (2)
  1. ABRILADA [Suspect]
     Active Substance: ADALIMUMAB-AFZB
     Indication: Crohn^s disease
     Dosage: 1DF 160 MG WEEK 0, 80MG WEEK 2 THEN 40MG Q 2 WEEKS
     Route: 058
     Dates: start: 2022
  2. HUMIRA [Concomitant]
     Active Substance: ADALIMUMAB
     Dosage: FREQUENCY WAS INCREASED TO EVERY ONE WEEK

REACTIONS (2)
  - Sepsis [Fatal]
  - Crohn^s disease [Unknown]

NARRATIVE: CASE EVENT DATE: 20220101
